FAERS Safety Report 16765803 (Version 1)
Quarter: 2019Q3

REPORT INFORMATION
  Report Type: Spontaneous
  Country: NL (occurrence: NL)
  Receive Date: 20190903
  Receipt Date: 20190903
  Transmission Date: 20191005
  Serious: Yes (Other)
  Sender: FDA-Public Use
  Company Number: NL-TEVA-2019-NL-1100333

PATIENT
  Age: 16 Year
  Sex: Female

DRUGS (1)
  1. ISOTRETINOINE CAPSULE ZACHT 20MG [Suspect]
     Active Substance: ISOTRETINOIN
     Indication: ACNE
     Dosage: 1 TIME (S) 2 TIMES A DAY
     Route: 048
     Dates: start: 20160812, end: 20160904

REACTIONS (1)
  - Blindness [Not Recovered/Not Resolved]

NARRATIVE: CASE EVENT DATE: 20160812
